FAERS Safety Report 10788275 (Version 1)
Quarter: 2015Q1

REPORT INFORMATION
  Report Type: Spontaneous
  Country: IL (occurrence: None)
  Receive Date: 20150210
  Receipt Date: 20150210
  Transmission Date: 20150721
  Serious: Yes (Other)
  Sender: FDA-Public Use
  Company Number: IPC201501-000049

PATIENT
  Age: 11 Week
  Sex: Female

DRUGS (6)
  1. FUROSEMIDE (FUROSEMIDE) (FUROSEMIDE) [Suspect]
     Active Substance: FUROSEMIDE
     Indication: HAEMANGIOMA
     Dosage: 1.5 MG/KG/DAY DIVIDED INTO 3 DOSES
  2. SPIRONOLACTONE. [Concomitant]
     Active Substance: SPIRONOLACTONE
  3. CAPTOPRIL. [Suspect]
     Active Substance: CAPTOPRIL
     Indication: CARDIAC FAILURE
  4. LOSARTAN [Concomitant]
     Active Substance: LOSARTAN
  5. PROPRANOLOL HYDROCHLORIDE. [Suspect]
     Active Substance: PROPRANOLOL HYDROCHLORIDE
     Indication: CARDIAC FAILURE
     Dosage: 1.5 MG/KG/DAY DIVIDED INTO 3 DOSES?
  6. PROPRANOLOL HYDROCHLORIDE. [Suspect]
     Active Substance: PROPRANOLOL HYDROCHLORIDE
     Indication: HAEMANGIOMA
     Dosage: 1.5 MG/KG/DAY DIVIDED INTO 3 DOSES?

REACTIONS (3)
  - Cough [None]
  - Seizure [None]
  - Off label use [None]
